FAERS Safety Report 7151532-7 (Version None)
Quarter: 2010Q4

REPORT INFORMATION
  Report Type: 
  Country: None (occurrence: None)
  Receive Date: 20101210
  Receipt Date: 20101201
  Transmission Date: 20110411
  Serious: Yes (Other)
  Sender: FDA-Public Use
  Company Number: IT-JNJCH-2010027716

PATIENT
  Sex: Female

DRUGS (2)
  1. ACTIGRIP [Suspect]
     Indication: PRODUCT USED FOR UNKNOWN INDICATION
     Dosage: TEXT:ONE TABLET TOTAL
     Route: 048
     Dates: start: 20100201, end: 20100201
  2. COUGH AND COLD PREPARATIONS [Concomitant]
     Indication: PRODUCT USED FOR UNKNOWN INDICATION
     Dosage: TEXT:ONE TABLET TOTAL
     Route: 048
     Dates: start: 20100201, end: 20100201

REACTIONS (1)
  - DERMATITIS BULLOUS [None]
